FAERS Safety Report 17727172 (Version 1)
Quarter: 2020Q2

REPORT INFORMATION
  Report Type: Spontaneous
  Country: US (occurrence: US)
  Receive Date: 20200430
  Receipt Date: 20200430
  Transmission Date: 20200714
  Serious: Yes (Hospitalization, Other)
  Sender: FDA-Public Use
  Company Number: US-SA-2020SA111509

PATIENT
  Age: 55 Year
  Sex: Male

DRUGS (25)
  1. VITAMIN D [ERGOCALCIFEROL] [Concomitant]
     Active Substance: ERGOCALCIFEROL
  2. RANEXA [Concomitant]
     Active Substance: RANOLAZINE
  3. MIRALAX [Concomitant]
     Active Substance: POLYETHYLENE GLYCOL 3350
  4. METOLAZONE. [Concomitant]
     Active Substance: METOLAZONE
     Dosage: UNK
  5. METOLAZONE. [Concomitant]
     Active Substance: METOLAZONE
     Dosage: UNK
     Dates: start: 20200214
  6. ASPIRINE [Suspect]
     Active Substance: ASPIRIN
     Dosage: UNK
  7. HUMALOG [Concomitant]
     Active Substance: INSULIN LISPRO
  8. PLAVIX [Suspect]
     Active Substance: CLOPIDOGREL BISULFATE
     Dosage: UNK
  9. TRADJENTA [Concomitant]
     Active Substance: LINAGLIPTIN
  10. METOPROLOL SUCCINATE. [Concomitant]
     Active Substance: METOPROLOL SUCCINATE
  11. ALLOPURINOL. [Concomitant]
     Active Substance: ALLOPURINOL
  12. TRAMADOL. [Concomitant]
     Active Substance: TRAMADOL
  13. PRADAXA [Concomitant]
     Active Substance: DABIGATRAN ETEXILATE MESYLATE
  14. METOLAZONE. [Concomitant]
     Active Substance: METOLAZONE
  15. HYDRALAZINE [Concomitant]
     Active Substance: HYDRALAZINE HYDROCHLORIDE
  16. MIFEPRISTONE [Suspect]
     Active Substance: MIFEPRISTONE
     Indication: CUSHING^S SYNDROME
     Dosage: 300 MG, QD
     Route: 048
     Dates: start: 20191226, end: 20200213
  17. TOUJEO [Concomitant]
     Active Substance: INSULIN GLARGINE
  18. NORCO [Concomitant]
     Active Substance: ACETAMINOPHEN\HYDROCODONE BITARTRATE
  19. POTASSIUM [Concomitant]
     Active Substance: POTASSIUM
  20. ISOSORBIDE MONONITRATE. [Concomitant]
     Active Substance: ISOSORBIDE MONONITRATE
  21. MELATONIN [Concomitant]
     Active Substance: MELATONIN
  22. DEMADEX [Concomitant]
     Active Substance: TORSEMIDE
  23. LEVOTHYROXINE. [Concomitant]
     Active Substance: LEVOTHYROXINE
  24. GABAPENTIN. [Concomitant]
     Active Substance: GABAPENTIN
  25. AMIODARONE [Concomitant]
     Active Substance: AMIODARONE

REACTIONS (23)
  - Blood phosphorus increased [Unknown]
  - Abdominal pain upper [Recovering/Resolving]
  - Blood pressure decreased [Not Recovered/Not Resolved]
  - Oedema peripheral [Recovered/Resolved]
  - Myalgia [Unknown]
  - Drug interaction [Unknown]
  - Abdominal discomfort [Not Recovered/Not Resolved]
  - Blood pressure increased [Recovered/Resolved]
  - Muscular weakness [Recovering/Resolving]
  - Chronic kidney disease [Unknown]
  - Chest pain [Not Recovered/Not Resolved]
  - Asthenia [Recovered/Resolved]
  - Nausea [Recovered/Resolved]
  - Dizziness [Recovered/Resolved]
  - Gastrointestinal motility disorder [Not Recovered/Not Resolved]
  - Blood glucose fluctuation [Not Recovered/Not Resolved]
  - Dyspnoea [Recovered/Resolved]
  - Blood potassium decreased [Unknown]
  - Constipation [Recovered/Resolved]
  - Fall [Unknown]
  - Heart rate increased [Unknown]
  - Dysuria [Unknown]
  - Fatigue [Recovering/Resolving]

NARRATIVE: CASE EVENT DATE: 20200105
